FAERS Safety Report 15952831 (Version 2)
Quarter: 2019Q1

REPORT INFORMATION
  Report Type: Spontaneous
  Country: TR (occurrence: TR)
  Receive Date: 20190212
  Receipt Date: 20190219
  Transmission Date: 20190417
  Serious: Yes (Other)
  Sender: FDA-Public Use
  Company Number: TR-BAYER-2019-028280

PATIENT
  Age: 32 Year
  Sex: Female

DRUGS (5)
  1. LOW MOLECULAR WEIGHT HEPARIN [Concomitant]
     Active Substance: UNSPECIFIED INGREDIENT
  2. ECULIZUMAB [Concomitant]
     Active Substance: ECULIZUMAB
     Dosage: 600 MG, EVERY WEEK
     Dates: start: 201511
  3. ASPIRIN. [Suspect]
     Active Substance: ASPIRIN
     Indication: PAROXYSMAL NOCTURNAL HAEMOGLOBINURIA
  4. ECULIZUMAB [Concomitant]
     Active Substance: ECULIZUMAB
     Dosage: 900 MG, Q2WK
  5. ENOXAPARIN [Suspect]
     Active Substance: ENOXAPARIN

REACTIONS (6)
  - Maternal exposure during pregnancy [None]
  - Premature delivery [Recovered/Resolved]
  - Off label use [None]
  - Contraindicated product administered [None]
  - Anaemia [Recovered/Resolved]
  - Foetal distress syndrome [Recovered/Resolved]
